FAERS Safety Report 12082359 (Version 2)
Quarter: 2016Q3

REPORT INFORMATION
  Report Type: Report from Study
  Country: AU (occurrence: AU)
  Receive Date: 20160217
  Receipt Date: 20160716
  Transmission Date: 20161109
  Serious: Yes (Death, Hospitalization, Other)
  Sender: FDA-Public Use
  Company Number: AU-AMGEN-AUSNI2016018441

PATIENT
  Age: 50 Year
  Sex: Female

DRUGS (7)
  1. ENDONE [Concomitant]
     Active Substance: OXYCODONE HYDROCHLORIDE
     Indication: PAIN
     Dosage: 2.5 MG, Q3H
     Route: 048
     Dates: start: 20160129, end: 20160131
  2. CARFILZOMIB [Suspect]
     Active Substance: CARFILZOMIB
     Indication: PLASMA CELL MYELOMA
     Dosage: 32.6 MG, UNK DAYS 1 AND 2
     Route: 042
     Dates: start: 20151125, end: 20151126
  3. HYDROMORPHONE [Concomitant]
     Active Substance: HYDROMORPHONE
     Dosage: UNK
  4. CARFILZOMIB [Suspect]
     Active Substance: CARFILZOMIB
     Dosage: 44 MG, UNK DAYS 1 AND 2 EVERY 7 DAYS WITH 7 DASY BREAK MONTHLY
     Route: 042
     Dates: start: 20151202, end: 20160107
  5. PIPERACILLIN/TAZOBACTAM [Concomitant]
     Active Substance: PIPERACILLIN SODIUM\TAZOBACTAM SODIUM
     Indication: SEPSIS
     Dosage: 4.5 MG, QD
     Route: 042
     Dates: start: 20160120, end: 20160201
  6. FLUCONAZOLE. [Concomitant]
     Active Substance: FLUCONAZOLE
     Dosage: 200 MG, QD
     Route: 048
     Dates: start: 20160129, end: 20160201
  7. DEXAMETHASONE. [Concomitant]
     Active Substance: DEXAMETHASONE
     Dosage: 40 MG, UNK
     Route: 048
     Dates: start: 20160130

REACTIONS (1)
  - Death [Fatal]

NARRATIVE: CASE EVENT DATE: 20160205
